FAERS Safety Report 24160316 (Version 2)
Quarter: 2024Q3

REPORT INFORMATION
  Report Type: Spontaneous
  Country: US (occurrence: US)
  Receive Date: 20240801
  Receipt Date: 20240919
  Transmission Date: 20241016
  Serious: No
  Sender: GLAXOSMITHKLINE
  Company Number: US-GSKCCFUS-Case-02064967_AE-114252

PATIENT
  Sex: Female
  Weight: 46.712 kg

DRUGS (1)
  1. BENLYSTA [Suspect]
     Active Substance: BELIMUMAB
     Indication: Systemic lupus erythematosus
     Dosage: 200 MG/ML, WE
     Route: 058

REACTIONS (8)
  - Swelling face [Recovered/Resolved]
  - Feeling hot [Unknown]
  - Hypoaesthesia [Unknown]
  - Paraesthesia oral [Unknown]
  - Urticaria [Unknown]
  - Pain in jaw [Unknown]
  - Facial pain [Unknown]
  - Oropharyngeal pain [Unknown]
